FAERS Safety Report 16083142 (Version 2)
Quarter: 2019Q1

REPORT INFORMATION
  Report Type: Spontaneous
  Country: US (occurrence: US)
  Receive Date: 20190318
  Receipt Date: 20190328
  Transmission Date: 20190418
  Serious: Yes (Other)
  Sender: FDA-Public Use
  Company Number: US-AUROBINDO-AUR-APL-2019-013333

PATIENT

DRUGS (1)
  1. LAMOTRIGINE TABLETS 100 MG [Suspect]
     Active Substance: LAMOTRIGINE
     Indication: BIPOLAR DISORDER
     Dosage: 100 MILLIGRAM, ONCE A DAY
     Route: 048
     Dates: start: 201803

REACTIONS (2)
  - Dementia [Unknown]
  - Amnesia [Unknown]

NARRATIVE: CASE EVENT DATE: 201902
